FAERS Safety Report 5632711-4 (Version None)
Quarter: 2008Q1

REPORT INFORMATION
  Report Type: 
  Country: None (occurrence: None)
  Receive Date: 20080221
  Receipt Date: 20080211
  Transmission Date: 20080703
  Serious: Yes (Other)
  Sender: FDA-Public Use
  Company Number: NO-JNJFOC-20080106644

PATIENT
  Age: 35 Year
  Sex: Female

DRUGS (3)
  1. INFLIXIMAB [Suspect]
     Indication: CROHN'S DISEASE
     Route: 042
  2. HUMIRA [Suspect]
     Indication: CROHN'S DISEASE
     Route: 058
  3. AZATHIOPRINE [Suspect]
     Indication: CROHN'S DISEASE
     Route: 048

REACTIONS (4)
  - CERVIX CARCINOMA [None]
  - FEMALE GENITAL TRACT FISTULA [None]
  - INTESTINAL RESECTION [None]
  - METASTASES TO LIVER [None]
